FAERS Safety Report 5401456-8 (Version None)
Quarter: 2007Q3

REPORT INFORMATION
  Report Type: 
  Country: None (occurrence: None)
  Receive Date: 20070726
  Receipt Date: 20070716
  Transmission Date: 20080115
  Serious: Yes (Disabling)
  Sender: FDA-Public Use
  Company Number: OSCN-NO-0707L-0295

PATIENT
  Age: 73 Year
  Sex: Male

DRUGS (2)
  1. OMNISCAN [Suspect]
     Indication: RENAL ARTERY STENOSIS
     Dosage: 0.1 MMOL/KG, SINGLE DOSE
     Dates: start: 20051201, end: 20051201
  2. EPOGEN [Concomitant]

REACTIONS (12)
  - CHRONIC OBSTRUCTIVE PULMONARY DISEASE [None]
  - HAEMODIALYSIS [None]
  - HYPERKALAEMIA [None]
  - LUNG INFECTION [None]
  - METABOLIC ACIDOSIS [None]
  - NEPHROGENIC SYSTEMIC FIBROSIS [None]
  - NORMOCHROMIC NORMOCYTIC ANAEMIA [None]
  - PATHOGEN RESISTANCE [None]
  - PSEUDOMONAS INFECTION [None]
  - RENAL ARTERY STENOSIS [None]
  - RESPIRATORY FAILURE [None]
  - VOMITING [None]
